FAERS Safety Report 8042396-8 (Version None)
Quarter: 2011Q4

REPORT INFORMATION
  Report Type: 
  Country: None (occurrence: None)
  Receive Date: 20111209
  Receipt Date: 20110909
  Transmission Date: 20120403
  Serious: Yes (Other)
  Sender: FDA-Public Use
  Company Number: TH-2011-00360

PATIENT
  Sex: Male
  Weight: 92 kg

DRUGS (4)
  1. EGRIFTA [Suspect]
     Indication: LIPODYSTROPHY ACQUIRED
     Dates: start: 20110301
  2. NORVIR [Concomitant]
  3. DARUNAVIR HYDRATE [Concomitant]
  4. TRUVADA [Concomitant]

REACTIONS (3)
  - DIVERTICULITIS [None]
  - CACHEXIA [None]
  - DYSPEPSIA [None]
